FAERS Safety Report 5625993-6 (Version None)
Quarter: 2008Q1

REPORT INFORMATION
  Report Type: 
  Country: None (occurrence: None)
  Receive Date: 20080214
  Receipt Date: 20080206
  Transmission Date: 20080703
  Serious: Yes (Other)
  Sender: FDA-Public Use
  Company Number: PHHY2008JP01460

PATIENT
  Age: 27 Year
  Sex: Male

DRUGS (4)
  1. CYCLOSPORINE [Suspect]
     Indication: RENAL TRANSPLANT
  2. SIMULECT [Concomitant]
     Dosage: 20MG, UNK
     Route: 042
  3. CELLCEPT [Concomitant]
  4. METHYLPREDNISOLONE [Concomitant]

REACTIONS (1)
  - DERMATOMYOSITIS [None]
